FAERS Safety Report 9607804 (Version 1)
Quarter: 2013Q4

REPORT INFORMATION
  Report Type: Spontaneous
  Country: US (occurrence: None)
  Receive Date: 20131008
  Receipt Date: 20131008
  Transmission Date: 20140711
  Serious: Yes (Disabling, Other)
  Sender: FDA-Public Use
  Company Number: None

PATIENT
  Age: 46 Year
  Sex: Female
  Weight: 62 kg

DRUGS (1)
  1. CIPROBAY [Suspect]
     Indication: KIDNEY INFECTION
     Dosage: 1 ONCE DAILY
     Route: 048
     Dates: start: 20130710, end: 20130716

REACTIONS (5)
  - Anxiety [None]
  - Feeling abnormal [None]
  - Local swelling [None]
  - Lacrimation increased [None]
  - Emotional disorder [None]
